FAERS Safety Report 24934872 (Version 1)
Quarter: 2025Q1

REPORT INFORMATION
  Report Type: Report from Study
  Country: US (occurrence: US)
  Receive Date: 20250206
  Receipt Date: 20250206
  Transmission Date: 20250409
  Serious: No
  Sender: SAGE
  Company Number: US-SAGE-2025SAGE000001

PATIENT
  Sex: Female

DRUGS (2)
  1. ZULRESSO [Suspect]
     Active Substance: BREXANOLONE
     Indication: Perinatal depression
     Route: 042
  2. GEODON [Suspect]
     Active Substance: ZIPRASIDONE HYDROCHLORIDE\ZIPRASIDONE MESYLATE
     Indication: Product used for unknown indication
     Route: 065

REACTIONS (1)
  - Adverse drug reaction [Unknown]
